FAERS Safety Report 4903018-5 (Version None)
Quarter: 2006Q1

REPORT INFORMATION
  Report Type: 
  Country: None (occurrence: None)
  Receive Date: 20060207
  Receipt Date: 20050823
  Transmission Date: 20060701
  Serious: Yes (Death, Hospitalization, Disabling)
  Sender: FDA-Public Use
  Company Number: PHBS2005JP12390

PATIENT
  Age: 76 Year
  Sex: Female
  Weight: 38 kg

DRUGS (6)
  1. NEORAL [Suspect]
     Indication: APLASTIC ANAEMIA
     Dosage: UNK, UNK
     Route: 048
     Dates: start: 19980601
  2. NEORAL [Suspect]
     Dosage: 9 DF/D
     Route: 048
     Dates: start: 20050621, end: 20050808
  3. NEORAL [Suspect]
     Dosage: 7 DF/D
     Route: 048
     Dates: start: 20050809, end: 20050826
  4. GASTER D [Concomitant]
     Dosage: 2 DF/D
     Route: 048
     Dates: start: 20050615, end: 20050720
  5. BASEN [Concomitant]
     Dosage: 3 DF/D
     Route: 048
     Dates: start: 20050615, end: 20050808
  6. GLIMICRON [Concomitant]
     Dosage: 1 DF/D
     Route: 048
     Dates: start: 20050809, end: 20050826

REACTIONS (11)
  - BLOOD PRESSURE DECREASED [None]
  - CATHETER RELATED INFECTION [None]
  - CLOSTRIDIUM COLITIS [None]
  - DEMENTIA [None]
  - DRUG INEFFECTIVE [None]
  - DRUG LEVEL INCREASED [None]
  - GASTROINTESTINAL HAEMORRHAGE [None]
  - MELAENA [None]
  - PYREXIA [None]
  - RESPIRATORY FAILURE [None]
  - SENILE DEMENTIA [None]
